FAERS Safety Report 13580822 (Version 2)
Quarter: 2017Q2

REPORT INFORMATION
  Report Type: Spontaneous
  Country: FR (occurrence: FR)
  Receive Date: 20170525
  Receipt Date: 20170605
  Transmission Date: 20170830
  Serious: Yes (Other)
  Sender: FDA-Public Use
  Company Number: FR-JNJFOC-20161104696

PATIENT
  Age: 35 Year
  Sex: Female
  Weight: 59 kg

DRUGS (6)
  1. SIMPONI [Suspect]
     Active Substance: GOLIMUMAB
     Indication: COLITIS ULCERATIVE
     Route: 058
     Dates: start: 20160627
  2. SIMPONI [Suspect]
     Active Substance: GOLIMUMAB
     Indication: COLITIS ULCERATIVE
     Route: 058
     Dates: start: 20160613
  3. SIMPONI [Suspect]
     Active Substance: GOLIMUMAB
     Indication: COLITIS ULCERATIVE
     Route: 058
     Dates: start: 20160729, end: 20170403
  4. LEVOTHYROX [Concomitant]
     Active Substance: LEVOTHYROXINE
     Indication: THYROID DISORDER
     Route: 065
  5. PENTASA [Concomitant]
     Active Substance: MESALAMINE
     Indication: COLITIS ULCERATIVE
     Route: 065
  6. TARDYFERON [Concomitant]
     Active Substance: FERROUS SULFATE
     Indication: COLITIS ULCERATIVE
     Route: 065

REACTIONS (12)
  - Insomnia [Recovering/Resolving]
  - Ear infection [Recovering/Resolving]
  - Drug ineffective [Unknown]
  - Impaired work ability [Recovering/Resolving]
  - Device malfunction [Unknown]
  - Pollakiuria [Recovering/Resolving]
  - Urticaria [Recovering/Resolving]
  - Tooth loss [Recovering/Resolving]
  - Injection site haemorrhage [Unknown]
  - Vulvovaginal mycotic infection [Recovering/Resolving]
  - Dental caries [Recovering/Resolving]
  - Polyuria [Not Recovered/Not Resolved]

NARRATIVE: CASE EVENT DATE: 20160613
